FAERS Safety Report 8766531 (Version 1)
Quarter: 2012Q4

REPORT INFORMATION
  Report Type: 
  Country: US (occurrence: US)
  Receive Date: 20120905
  Receipt Date: 20120905
  Transmission Date: 20130627
  Serious: Yes (Hospitalization)
  Sender: FDA-Public Use
  Company Number: US-ASTRAZENECA-2012SE64543

PATIENT
  Age: 76 Year
  Sex: Female
  Weight: 70.3 kg

DRUGS (5)
  1. NEXIUM [Suspect]
     Indication: GASTROOESOPHAGEAL REFLUX DISEASE
     Route: 048
     Dates: start: 2005
  2. NEXIUM [Suspect]
     Indication: GASTROOESOPHAGEAL REFLUX DISEASE
     Route: 048
     Dates: start: 201206
  3. OMEPRAZOLE [Suspect]
     Indication: GASTROOESOPHAGEAL REFLUX DISEASE
     Route: 048
     Dates: start: 201102
  4. DULERA [Concomitant]
     Indication: ASTHMA
  5. ACIPHEX [Concomitant]
     Indication: GASTROOESOPHAGEAL REFLUX DISEASE

REACTIONS (12)
  - Intestinal haemorrhage [Unknown]
  - Cystocele [Recovered/Resolved]
  - Serum ferritin decreased [Unknown]
  - Microcytic anaemia [Unknown]
  - Asthma [Recovered/Resolved]
  - Aphonia [Recovered/Resolved]
  - Gastritis erosive [Unknown]
  - Occult blood positive [Unknown]
  - Gastrooesophageal reflux disease [Recovered/Resolved]
  - Body height decreased [Unknown]
  - Dysgeusia [Recovered/Resolved]
  - Drug ineffective [Unknown]
